FAERS Safety Report 4516610-7 (Version None)
Quarter: 2004Q4

REPORT INFORMATION
  Report Type: 
  Country: None (occurrence: None)
  Receive Date: 20041202
  Receipt Date: 20040308
  Transmission Date: 20050328
  Serious: Yes (Death)
  Sender: FDA-Public Use
  Company Number: GB-MERCK-0403GBR00080

PATIENT
  Age: 68 Year
  Sex: Male

DRUGS (5)
  1. ZOCOR [Suspect]
     Indication: AORTIC ANEURYSM
     Route: 048
     Dates: start: 19951201, end: 20010301
  2. ZOCOR [Suspect]
     Route: 048
     Dates: start: 20010301, end: 20011001
  3. ZOCOR [Suspect]
     Route: 048
  4. ATORVASTATIN CALCIUM [Suspect]
     Indication: AORTIC ANEURYSM
     Route: 065
     Dates: start: 20011001, end: 20020201
  5. ATORVASTATIN CALCIUM [Suspect]
     Route: 065
     Dates: start: 20020201

REACTIONS (4)
  - ALVEOLITIS FIBROSING [None]
  - CONDITION AGGRAVATED [None]
  - PULMONARY FIBROSIS [None]
  - RESPIRATORY FAILURE [None]
